FAERS Safety Report 7623477-7 (Version None)
Quarter: 2011Q3

REPORT INFORMATION
  Report Type: 
  Country: None (occurrence: None)
  Receive Date: 20110720
  Receipt Date: 20110712
  Transmission Date: 20111222
  Serious: Yes (Hospitalization)
  Sender: FDA-Public Use
  Company Number: PHHY2011GB55038

PATIENT
  Age: 62 Year
  Sex: Male
  Weight: 75.3 kg

DRUGS (18)
  1. FOLIC ACID [Concomitant]
     Dosage: 5 MG, QW
  2. TRAMADOL HCL [Concomitant]
  3. LEFLUNOMIDE [Suspect]
     Indication: RHEUMATOID ARTHRITIS
     Dosage: 20 MG, QD
     Dates: end: 20110527
  4. PREDNISOLONE [Concomitant]
     Dosage: 15 MG, UNK
  5. METHOTREXATE [Suspect]
     Indication: RHEUMATOID ARTHRITIS
     Dosage: 10 MG, QD
     Dates: end: 20110527
  6. ADALAT CC [Concomitant]
  7. ATENOLOL [Concomitant]
     Dosage: 50 MG, UNK
  8. NITROGLYCERIN [Concomitant]
  9. MEBEVERINE [Concomitant]
     Dosage: 200 MG, BID
  10. CALCIUM CARBONATE [Concomitant]
     Dosage: 1 DF, BID
  11. BEZAFIBRATE [Concomitant]
     Dosage: 400 MG, BID
  12. LISINOPRIL [Concomitant]
     Dosage: 5 MG, QD
  13. OMEPRAZOLE [Concomitant]
     Dosage: 40 MG, QD
  14. PREDNISOLONE [Concomitant]
     Dosage: 7.5 MG, UNK
  15. ETANERCEPT [Concomitant]
  16. GABAPENTIN [Concomitant]
     Dosage: 1 DF, TID
  17. PRAVASTATIN [Concomitant]
     Dosage: 40 MG, QD
  18. WARFARIN SODIUM [Concomitant]

REACTIONS (6)
  - PANCYTOPENIA [None]
  - NEUTROPENIC SEPSIS [None]
  - FEBRILE NEUTROPENIA [None]
  - RECTAL HAEMORRHAGE [None]
  - BONE MARROW TOXICITY [None]
  - ANAEMIA [None]
